FAERS Safety Report 7517535-5 (Version None)
Quarter: 2011Q2

REPORT INFORMATION
  Report Type: 
  Country: None (occurrence: None)
  Receive Date: 20110601
  Receipt Date: 20110518
  Transmission Date: 20111010
  Serious: Yes (Hospitalization, Other)
  Sender: FDA-Public Use
  Company Number: US-ELI_LILLY_AND_COMPANY-US201008007882

PATIENT
  Sex: Female

DRUGS (19)
  1. HUMALOG [Suspect]
     Dosage: 1 U, AT DINNER EVERY 12MG OF CARBOHYDRATES
  2. AMLODIPINE BESYLATE [Concomitant]
     Dosage: 5 MG, DAILY (1/D) AT LUNCH
  3. ASPIRIN [Concomitant]
     Dosage: 81 MG, DAILY (1/D) AT LUNCH
  4. CALTRATE D                         /00944201/ [Concomitant]
     Dosage: 1 D/F, 2/D AT BREAKFAST AND LUNCH
  5. HUMALOG [Suspect]
     Dosage: 1 U, AT LUNCH EVERY 15MG OF CARBOHYDRATES
  6. MULTI-VITAMIN [Concomitant]
     Dosage: UNK, DAILY (1/D) AT LUNCH
  7. FORTEO [Suspect]
     Dosage: 20 UG, DAILY (1/D)
  8. HUMALOG [Suspect]
     Dosage: 1 U, AT BREAKFAST EVERY 15MG OF CARBOHYDRATES
  9. SIMVASTATIN [Concomitant]
     Dosage: 10 MG, AT BEDTIME
  10. DIOVAN [Concomitant]
     Dosage: 160 MG, 2/D AT BREAKFAST AND DINNER
  11. LANTUS [Concomitant]
     Dosage: 24 U, DAILY (1/D)
  12. METOPROLOL TARTRATE [Concomitant]
     Dosage: 25 MG, 2/D AT BREAKFAST AND DINNER
  13. OMEPRAZOLE [Concomitant]
     Dosage: 20 MG, DAILY (1/D) 1/2 HOUR BEFORE BREAKFAST
  14. FORTEO [Suspect]
     Indication: OSTEOPOROSIS
     Dosage: 20 UG, DAILY (1/D)
     Route: 065
     Dates: start: 20100822
  15. FORTEO [Suspect]
     Dosage: 20 UG, DAILY (1/D)
     Route: 065
  16. FORTEO [Suspect]
     Dosage: 20 UG, QD
     Route: 065
  17. PREDNISONE [Concomitant]
     Dosage: 15 MG, DAILY (1/D) AT BREAKFAST
  18. DIGOXIN [Concomitant]
     Dosage: 1 D/F, DAILY (1/D) WITH BREAKFAST
  19. MINERAL [Concomitant]
     Dosage: UNK, DAILY (1/D) AT LUNCH

REACTIONS (19)
  - NASOPHARYNGITIS [None]
  - DRUG DOSE OMISSION [None]
  - PRESYNCOPE [None]
  - HEART RATE INCREASED [None]
  - MUSCULOSKELETAL DISCOMFORT [None]
  - COUGH [None]
  - LIMB DISCOMFORT [None]
  - TOOTH INJURY [None]
  - LOSS OF CONSCIOUSNESS [None]
  - BALANCE DISORDER [None]
  - EXCORIATION [None]
  - BLOOD GLUCOSE INCREASED [None]
  - DIZZINESS [None]
  - DRY MOUTH [None]
  - RHINORRHOEA [None]
  - ARRHYTHMIA [None]
  - URINARY TRACT INFECTION [None]
  - DEVICE MISUSE [None]
  - FALL [None]
